FAERS Safety Report 8252194-8 (Version None)
Quarter: 2012Q2

REPORT INFORMATION
  Report Type: 
  Country: None (occurrence: None)
  Receive Date: 20120402
  Receipt Date: 20110907
  Transmission Date: 20120825
  Serious: No
  Sender: FDA-Public Use
  Company Number: US-ABBOTT-11P-163-0852671-00

PATIENT
  Age: 41 Year
  Sex: Male
  Weight: 97.61 kg

DRUGS (2)
  1. ANDROGEL [Suspect]
     Indication: BLOOD TESTOSTERONE DECREASED
     Dates: start: 20110903
  2. VITAMIN D [Concomitant]
     Indication: VITAMIN D DECREASED
     Dates: start: 20110701

REACTIONS (3)
  - MALAISE [None]
  - PARAESTHESIA [None]
  - FAECES PALE [None]
